FAERS Safety Report 12699565 (Version 3)
Quarter: 2022Q4

REPORT INFORMATION
  Report Type: Report from Study
  Country: US (occurrence: US)
  Receive Date: 20160830
  Receipt Date: 20221228
  Transmission Date: 20230112
  Serious: Yes (Hospitalization, Other)
  Sender: FDA-Public Use
  Company Number: US-KAMADA LIMITED-2016US001402

PATIENT
  Age: 69 Year
  Sex: Male

DRUGS (38)
  1. GLASSIA [Suspect]
     Active Substance: .ALPHA.1-PROTEINASE INHIBITOR HUMAN
     Indication: Alpha-1 antitrypsin deficiency
     Dosage: UNK
     Route: 042
  2. GLASSIA [Suspect]
     Active Substance: .ALPHA.1-PROTEINASE INHIBITOR HUMAN
     Indication: Alpha-1 antitrypsin deficiency
     Dosage: UNK
     Route: 042
  3. GLASSIA [Suspect]
     Active Substance: .ALPHA.1-PROTEINASE INHIBITOR HUMAN
     Dosage: UNK, 1/WEEK
     Route: 050
  4. GLASSIA [Suspect]
     Active Substance: .ALPHA.1-PROTEINASE INHIBITOR HUMAN
     Dosage: UNK, 1/WEEK
     Route: 050
  5. GLASSIA [Suspect]
     Active Substance: .ALPHA.1-PROTEINASE INHIBITOR HUMAN
     Dosage: UNK
     Route: 042
     Dates: start: 20200219
  6. GLASSIA [Suspect]
     Active Substance: .ALPHA.1-PROTEINASE INHIBITOR HUMAN
     Dosage: UNK
     Route: 042
     Dates: start: 20200219
  7. CLINDAMYCIN [Concomitant]
     Active Substance: CLINDAMYCIN
  8. METFORMIN [Concomitant]
     Active Substance: METFORMIN HYDROCHLORIDE
  9. ASPIRIN [Concomitant]
     Active Substance: ASPIRIN
  10. LEVEMIR [Concomitant]
     Active Substance: INSULIN DETEMIR
  11. LOTENSIN [Concomitant]
     Active Substance: BENAZEPRIL HYDROCHLORIDE
  12. LIPITOR [Concomitant]
     Active Substance: ATORVASTATIN CALCIUM
  13. VICTOZA [Concomitant]
     Active Substance: LIRAGLUTIDE
  14. COREG [Concomitant]
     Active Substance: CARVEDILOL
  15. LOVAZA [Concomitant]
     Active Substance: OMEGA-3-ACID ETHYL ESTERS
  16. TRICOR                             /00090101/ [Concomitant]
  17. IMDUR [Concomitant]
     Active Substance: ISOSORBIDE MONONITRATE
  18. NITROGLYCERIN [Concomitant]
     Active Substance: NITROGLYCERIN
  19. ALLEGRA [Concomitant]
     Active Substance: FEXOFENADINE HYDROCHLORIDE
  20. SINGULAIR [Concomitant]
     Active Substance: MONTELUKAST SODIUM
  21. AVAPRO [Concomitant]
     Active Substance: IRBESARTAN
  22. SPIRIVA [Concomitant]
     Active Substance: TIOTROPIUM BROMIDE MONOHYDRATE
  23. SYMBICORT [Concomitant]
     Active Substance: BUDESONIDE\FORMOTEROL FUMARATE DIHYDRATE
  24. PROAIR HFA [Concomitant]
     Active Substance: ALBUTEROL SULFATE
  25. ENTOCORT [Concomitant]
     Active Substance: BUDESONIDE
  26. PRILOSEC [Concomitant]
     Active Substance: OMEPRAZOLE MAGNESIUM
  27. ZANTAC [Concomitant]
     Active Substance: RANITIDINE HYDROCHLORIDE
  28. FOLIC ACID [Concomitant]
     Active Substance: FOLIC ACID
  29. ALLOPURINOL [Concomitant]
     Active Substance: ALLOPURINOL
  30. POTASSIUM CITRATE [Concomitant]
     Active Substance: POTASSIUM CITRATE
  31. FLOMAX [Concomitant]
     Active Substance: TAMSULOSIN HYDROCHLORIDE
  32. PROSCAR [Concomitant]
     Active Substance: FINASTERIDE
  33. NEURONTIN [Concomitant]
     Active Substance: GABAPENTIN
  34. CALTRATE [Concomitant]
     Active Substance: CALCIUM CARBONATE
  35. TESTOSTERONE [Concomitant]
     Active Substance: TESTOSTERONE
  36. VITAMIN B [Concomitant]
     Active Substance: VITAMIN B
  37. VITAMIN D3 [Concomitant]
     Active Substance: CHOLECALCIFEROL
  38. HYDROCHLOROTHIAZIDE [Concomitant]
     Active Substance: HYDROCHLOROTHIAZIDE

REACTIONS (4)
  - Cellulitis [Unknown]
  - Syncope [Unknown]
  - Malaise [Not Recovered/Not Resolved]
  - Cough [Not Recovered/Not Resolved]

NARRATIVE: CASE EVENT DATE: 20221220
